FAERS Safety Report 4367879-3 (Version None)
Quarter: 2004Q2

REPORT INFORMATION
  Report Type: 
  Country: None (occurrence: None)
  Receive Date: 20040601
  Receipt Date: 20040601
  Transmission Date: 20050107
  Serious: Yes (Other)
  Sender: FDA-Public Use
  Company Number: None

PATIENT
  Age: 80 Year
  Sex: Male
  Weight: 72.5755 kg

DRUGS (5)
  1. VASOTEC [Suspect]
     Indication: HYPERTENSION
     Dosage: ONE TAB TWICE DAIL ORAL
     Route: 048
     Dates: start: 20000510, end: 20040519
  2. ENALAPRIL MALEATE [Suspect]
     Indication: HYPERTENSION
     Dosage: ONE TAB TWICE DAIL ORAL
     Route: 048
     Dates: start: 20040520, end: 20040530
  3. MULTI-VITAMINS [Concomitant]
  4. MOBIC [Concomitant]
  5. ASPIRIN [Concomitant]

REACTIONS (4)
  - BLOOD GLUCOSE INCREASED [None]
  - BLOOD PRESSURE DECREASED [None]
  - DIABETES MELLITUS INADEQUATE CONTROL [None]
  - PHARMACEUTICAL PRODUCT COMPLAINT [None]
